FAERS Safety Report 7421046-5 (Version None)
Quarter: 2011Q2

REPORT INFORMATION
  Report Type: 
  Country: None (occurrence: None)
  Receive Date: 20110418
  Receipt Date: 20110411
  Transmission Date: 20111010
  Serious: Yes (Hospitalization)
  Sender: FDA-Public Use
  Company Number: US-B.I. PHARMACEUTICALS,INC./RIDGEFIELD-2011-BP-10512BP

PATIENT
  Age: 74 Year
  Sex: Female

DRUGS (8)
  1. DESMOPRESSIN ACETATE [Concomitant]
     Indication: BLADDER DISORDER
  2. PANTOPRAZOLE SODIUM [Concomitant]
     Indication: GASTROOESOPHAGEAL REFLUX DISEASE
  3. PRADAXA [Suspect]
     Indication: THROMBOSIS PROPHYLAXIS
     Dosage: 300 MG
     Route: 048
     Dates: start: 20110101, end: 20110401
  4. INDOCINE [Concomitant]
     Indication: GOUT
  5. LISINOPRIL [Concomitant]
     Indication: HYPERTENSION
  6. ALLOPURINOL [Concomitant]
     Indication: GOUT
  7. FLOVENT [Concomitant]
     Indication: ASTHMA
  8. ALBUTEROL [Concomitant]
     Indication: ASTHMA

REACTIONS (6)
  - DIARRHOEA [None]
  - HYPERTENSION [None]
  - RECTAL HAEMORRHAGE [None]
  - DIVERTICULITIS [None]
  - HEADACHE [None]
  - CONSTIPATION [None]
